FAERS Safety Report 24635346 (Version 1)
Quarter: 2024Q4

REPORT INFORMATION
  Report Type: Spontaneous
  Country: US (occurrence: US)
  Receive Date: 20241119
  Receipt Date: 20241119
  Transmission Date: 20250115
  Serious: Yes (Other)
  Sender: AMNEAL
  Company Number: US-AMNEAL PHARMACEUTICALS-2023-AMRX-03507

PATIENT
  Sex: Female

DRUGS (1)
  1. ISOTRETINOIN [Suspect]
     Active Substance: ISOTRETINOIN
     Indication: Product used for unknown indication
     Dosage: UNK
     Route: 065
     Dates: start: 20220119

REACTIONS (8)
  - Molluscum contagiosum [Unknown]
  - Xerosis [Unknown]
  - Skin papilloma [Unknown]
  - Chapped lips [Unknown]
  - Epistaxis [Unknown]
  - Dry skin [Unknown]
  - Lip dry [Unknown]
  - Blood triglycerides increased [Unknown]
